FAERS Safety Report 24378088 (Version 7)
Quarter: 2024Q4

REPORT INFORMATION
  Report Type: Spontaneous
  Country: US (occurrence: US)
  Receive Date: 20240930
  Receipt Date: 20241230
  Transmission Date: 20250114
  Serious: No
  Sender: PFIZER
  Company Number: US-PFIZER INC-202400259184

PATIENT
  Age: 41 Year
  Sex: Male
  Weight: 99.79 kg

DRUGS (3)
  1. SOMAVERT [Suspect]
     Active Substance: PEGVISOMANT
     Indication: Acromegaly
     Dosage: 20 MG SDV/INJ 20 MG UNDER THE SKIN DAILY
     Route: 058
  2. SOMAVERT [Suspect]
     Active Substance: PEGVISOMANT
     Indication: Brain neoplasm
  3. APRISO [Concomitant]
     Active Substance: MESALAMINE

REACTIONS (5)
  - Device breakage [Unknown]
  - Device issue [Unknown]
  - Device leakage [Unknown]
  - Device colour issue [Unknown]
  - Device difficult to use [Unknown]

NARRATIVE: CASE EVENT DATE: 20240914
